FAERS Safety Report 8533313-2 (Version None)
Quarter: 2012Q2

REPORT INFORMATION
  Report Type: 
  Country: None (occurrence: None)
  Receive Date: 20120412
  Receipt Date: 20120206
  Transmission Date: 20120825
  Serious: Yes (Other)
  Sender: FDA-Public Use
  Company Number: 2012S1000009

PATIENT
  Age: 33 Year
  Sex: Male
  Weight: 103.8737 kg

DRUGS (3)
  1. BENADRYL /00945501/ [Concomitant]
  2. SOLU-MEDROL [Concomitant]
  3. KRYSTEXXA [Suspect]
     Indication: GOUT
     Dosage: 8 MG;QOW;IV
     Route: 042
     Dates: start: 20111219, end: 20120105

REACTIONS (2)
  - INFUSION RELATED REACTION [None]
  - DRUG INEFFECTIVE [None]
